FAERS Safety Report 7125444-9 (Version None)
Quarter: 2010Q4

REPORT INFORMATION
  Report Type: 
  Country: None (occurrence: None)
  Receive Date: 20101129
  Receipt Date: 20101115
  Transmission Date: 20110411
  Serious: Yes (Hospitalization)
  Sender: FDA-Public Use
  Company Number: DE-ROCHE-729910

PATIENT
  Sex: Female
  Weight: 49.5 kg

DRUGS (4)
  1. BEVACIZUMAB [Suspect]
     Dosage: TOTAL DOSE: 742.5MG. FORM: VIALS. LAST DOSE PRIOR TO SAE: 23 SEP 2010
     Route: 042
     Dates: start: 20100923
  2. TRASTUZUMAB [Suspect]
     Dosage: TOTAL DOSE: 396MG. FORM: VIALS. LAST DOSE PRIOR TO SAE: 23 SEP 2010
     Route: 042
     Dates: start: 20100923
  3. DOCETAXEL [Suspect]
     Dosage: TOTAL DOSE: 112.5MG. FORM: VIALS. LAST DOSE PRIOR TO SAE: 23 SEP 2010
     Route: 042
     Dates: start: 20100923
  4. CARBOPLATIN [Suspect]
     Dosage: DOSE LEVEL: 6 AUC. FORM: VIALS. LAST DOSE PRIOR TO SAE: 23 SEP 2010
     Route: 042
     Dates: start: 20100923

REACTIONS (1)
  - VERTIGO [None]
